FAERS Safety Report 18085074 (Version 4)
Quarter: 2020Q4

REPORT INFORMATION
  Report Type: Report from Study
  Country: US (occurrence: US)
  Receive Date: 20200729
  Receipt Date: 20201018
  Transmission Date: 20210113
  Serious: Yes (Hospitalization, Other)
  Sender: FDA-Public Use
  Company Number: NVSC2020US209777

PATIENT
  Age: 82 Year
  Sex: Female

DRUGS (4)
  1. NORCO [Concomitant]
     Active Substance: ACETAMINOPHEN\HYDROCODONE BITARTRATE
     Indication: PROCEDURAL PAIN
     Dosage: UNK
     Route: 065
  2. JARDIANCE [Concomitant]
     Active Substance: EMPAGLIFLOZIN
     Indication: DIABETES MELLITUS
     Dosage: UNK
     Route: 065
  3. ENTRESTO [Suspect]
     Active Substance: SACUBITRIL\VALSARTAN
     Dosage: 50 MG, ONCE2SDO
     Route: 048
     Dates: start: 20200715, end: 20200911
  4. ENTRESTO [Suspect]
     Active Substance: SACUBITRIL\VALSARTAN
     Indication: CARDIAC FAILURE
     Dosage: 24.26 MG, BID
     Route: 048
     Dates: start: 20200715, end: 20200731

REACTIONS (10)
  - Diabetes mellitus [Recovering/Resolving]
  - Joint injury [Recovering/Resolving]
  - Heart rate abnormal [Unknown]
  - Product prescribing error [Unknown]
  - Cerebral haemorrhage [Unknown]
  - Lumbarisation [Unknown]
  - Pain [Not Recovered/Not Resolved]
  - Intervertebral disc disorder [Unknown]
  - Ovarian cyst [Unknown]
  - Gait disturbance [Unknown]

NARRATIVE: CASE EVENT DATE: 20200715
